FAERS Safety Report 17153638 (Version 1)
Quarter: 2019Q4

REPORT INFORMATION
  Report Type: Spontaneous
  Country: DE (occurrence: DE)
  Receive Date: 20191213
  Receipt Date: 20191213
  Transmission Date: 20200122
  Serious: Yes (Other)
  Sender: FDA-Public Use
  Company Number: DE-BAUSCH-BL-2019-064820

PATIENT
  Age: 36 Year
  Sex: Female
  Weight: 52 kg

DRUGS (8)
  1. CIMZIA [Concomitant]
     Active Substance: CERTOLIZUMAB PEGOL
     Route: 058
     Dates: start: 20170630
  2. ROACTEMRA [Concomitant]
     Active Substance: TOCILIZUMAB
     Route: 041
     Dates: start: 20170115
  3. ROACTEMRA [Concomitant]
     Active Substance: TOCILIZUMAB
     Indication: JUVENILE IDIOPATHIC ARTHRITIS
     Route: 041
     Dates: start: 20170203
  4. CIMZIA [Concomitant]
     Active Substance: CERTOLIZUMAB PEGOL
     Indication: JUVENILE IDIOPATHIC ARTHRITIS
     Route: 058
     Dates: start: 20170910
  5. PREDNISOLON [Suspect]
     Active Substance: PREDNISOLONE
     Indication: JUVENILE IDIOPATHIC ARTHRITIS
     Route: 048
  6. OMEPRAZOL [Concomitant]
     Active Substance: OMEPRAZOLE
     Indication: GASTRITIS PROPHYLAXIS
     Route: 048
  7. IBUPROFEN. [Concomitant]
     Active Substance: IBUPROFEN
     Indication: JUVENILE IDIOPATHIC ARTHRITIS
     Route: 048
  8. PREDNISOLON [Suspect]
     Active Substance: PREDNISOLONE
     Route: 048

REACTIONS (2)
  - Gestational diabetes [Recovered/Resolved]
  - Maternal exposure during pregnancy [Unknown]
